FAERS Safety Report 6108383-1 (Version None)
Quarter: 2009Q1

REPORT INFORMATION
  Report Type: 
  Country: None (occurrence: None)
  Receive Date: 20090309
  Receipt Date: 20090225
  Transmission Date: 20090719
  Serious: Yes (Other)
  Sender: FDA-Public Use
  Company Number: US-PFIZER INC-2007025352

PATIENT
  Age: 51 Year
  Sex: Female
  Weight: 61.2 kg

DRUGS (10)
  1. NEURONTIN [Suspect]
     Indication: NEURALGIA
     Dosage: 300 MG, 3X/DAY
     Dates: start: 19960101, end: 20061218
  2. PROCARDIA [Suspect]
     Dosage: UNK
     Dates: start: 19960101
  3. LYRICA [Suspect]
     Indication: NERVE INJURY
  4. VYTORIN [Concomitant]
     Dosage: UNK
  5. PLAVIX [Concomitant]
  6. TOPROL-XL [Concomitant]
  7. ASPIRIN [Concomitant]
  8. QUININE [Concomitant]
  9. ALPRAZOLAM [Concomitant]
  10. FOSAMAX [Concomitant]

REACTIONS (12)
  - ALOPECIA [None]
  - ARTERIAL OCCLUSIVE DISEASE [None]
  - BACK INJURY [None]
  - DRUG INEFFECTIVE [None]
  - FEELING ABNORMAL [None]
  - FIBROMYALGIA [None]
  - GAIT DISTURBANCE [None]
  - HEADACHE [None]
  - MUSCLE FATIGUE [None]
  - NEURALGIA [None]
  - OSTEOPOROSIS [None]
  - PARAESTHESIA [None]
